FAERS Safety Report 17092805 (Version 1)
Quarter: 2019Q4

REPORT INFORMATION
  Report Type: Spontaneous
  Country: FR (occurrence: FR)
  Receive Date: 20191129
  Receipt Date: 20191129
  Transmission Date: 20200122
  Serious: Yes (Hospitalization, Other)
  Sender: FDA-Public Use
  Company Number: FR-TEVA-2019-FR-1143845

PATIENT
  Sex: Male

DRUGS (1)
  1. AIROMIR AUTOHALER 100 MCG/DOSE [Suspect]
     Active Substance: ALBUTEROL SULFATE
     Route: 065

REACTIONS (2)
  - Asthmatic crisis [Unknown]
  - Product packaging quantity issue [Unknown]
